FAERS Safety Report 9196401 (Version 1)
Quarter: 2013Q1

REPORT INFORMATION
  Report Type: Other
  Country: PR (occurrence: PR)
  Receive Date: 20130328
  Receipt Date: 20130328
  Transmission Date: 20140127
  Serious: Yes (Life-Threatening)
  Sender: FDA-Public Use
  Company Number: PR-BRISTOL-MYERS SQUIBB COMPANY-18699702

PATIENT
  Age: 71 Year
  Sex: Male

DRUGS (3)
  1. METOPROLOL TARTRATE [Suspect]
     Indication: BLOOD PRESSURE MANAGEMENT
  2. LISINOPRIL [Suspect]
     Indication: BLOOD PRESSURE MANAGEMENT
  3. CO-TRIMOXAZOLE [Suspect]
     Indication: CELLULITIS
     Dosage: 1 DF:CO-TRIMOXAZOLE 2 TABS

REACTIONS (4)
  - Hyperkalaemia [Recovered/Resolved]
  - Unresponsive to stimuli [None]
  - Nodal rhythm [None]
  - Haemodialysis [None]
